FAERS Safety Report 6645654-4 (Version None)
Quarter: 2010Q1

REPORT INFORMATION
  Report Type: 
  Country: None (occurrence: None)
  Receive Date: 20100319
  Receipt Date: 20100319
  Transmission Date: 20100710
  Serious: Yes (Hospitalization)
  Sender: FDA-Public Use
  Company Number: None

PATIENT
  Sex: Female
  Weight: 108.9 kg

DRUGS (1)
  1. MEMANTINE HCL [Suspect]
     Dosage: 702 MG

REACTIONS (8)
  - AXILLARY VEIN THROMBOSIS [None]
  - CARDIAC DISORDER [None]
  - DYSPNOEA [None]
  - OEDEMA PERIPHERAL [None]
  - PULMONARY EMBOLISM [None]
  - PULMONARY HAEMORRHAGE [None]
  - PULMONARY INFARCTION [None]
  - THROMBOCYTOPENIA [None]
